FAERS Safety Report 23802219 (Version 4)
Quarter: 2024Q2

REPORT INFORMATION
  Report Type: Report from Study
  Country: JP (occurrence: JP)
  Receive Date: 20240501
  Receipt Date: 20240621
  Transmission Date: 20240716
  Serious: Yes (Other)
  Sender: FDA-Public Use
  Company Number: JP-UCBSA-2024019539

PATIENT
  Age: 31 Year
  Sex: Female

DRUGS (2)
  1. ZILUCOPLAN [Suspect]
     Active Substance: ZILUCOPLAN
     Indication: Myasthenia gravis
     Dosage: UNK
     Route: 058
     Dates: start: 20240410
  2. PREDNISOLONE [Concomitant]
     Active Substance: PREDNISOLONE
     Indication: Product used for unknown indication
     Dosage: 10 MILLIGRAM
     Route: 048

REACTIONS (3)
  - Myasthenia gravis [Not Recovered/Not Resolved]
  - Injection site pain [Unknown]
  - Genital odour [Unknown]

NARRATIVE: CASE EVENT DATE: 20240101
